FAERS Safety Report 5471588-7 (Version None)
Quarter: 2007Q3

REPORT INFORMATION
  Report Type: 
  Country: None (occurrence: None)
  Receive Date: 20070928
  Receipt Date: 20070125
  Transmission Date: 20080115
  Serious: No
  Sender: FDA-Public Use
  Company Number: US-BRISTOL-MYERS SQUIBB COMPANY-13658471

PATIENT
  Age: 52 Year
  Sex: Female
  Weight: 136 kg

DRUGS (1)
  1. DEFINITY [Suspect]
     Dosage: DOSING IS 2.5 TO 3 CC.
     Dates: start: 20070124, end: 20070124

REACTIONS (3)
  - ARTHRALGIA [None]
  - HYPOAESTHESIA [None]
  - PHARYNGOLARYNGEAL PAIN [None]
